FAERS Safety Report 9527578 (Version 1)
Quarter: 2013Q3

REPORT INFORMATION
  Report Type: Spontaneous
  Country: US (occurrence: None)
  Receive Date: 20130913
  Receipt Date: 20130913
  Transmission Date: 20140515
  Serious: Yes (Life-Threatening, Disabling)
  Sender: FDA-Public Use
  Company Number: None

PATIENT
  Age: 16 Year
  Sex: Female
  Weight: 58.97 kg

DRUGS (6)
  1. CLINDAMYCIN [Suspect]
     Indication: POST PROCEDURAL INFECTION
     Route: 048
     Dates: start: 20130531, end: 20130610
  2. TOPOMAX [Concomitant]
  3. VANCOMYCIN [Concomitant]
  4. RANITIDINE [Concomitant]
  5. FLEXERIL [Concomitant]
  6. FLORASTOR [Concomitant]

REACTIONS (8)
  - Clostridium difficile infection [None]
  - Diarrhoea [None]
  - Dehydration [None]
  - Hypophagia [None]
  - Malabsorption [None]
  - Migraine [None]
  - Arthralgia [None]
  - Haematochezia [None]
